FAERS Safety Report 5599823-5 (Version None)
Quarter: 2008Q1

REPORT INFORMATION
  Report Type: 
  Country: None (occurrence: None)
  Receive Date: 20080123
  Receipt Date: 20080114
  Transmission Date: 20080703
  Serious: Yes (Other)
  Sender: FDA-Public Use
  Company Number: US-ROCHE-537350

PATIENT
  Age: 47 Year
  Sex: Female

DRUGS (3)
  1. PEG-INTERFERON A-2A (RO 25-8310) [Suspect]
     Indication: HEPATITIS C
     Dosage: WEEK 15 OF THERAPY.
     Route: 065
     Dates: start: 20071003
  2. RIBAVIRIN [Suspect]
     Indication: HEPATITIS C
     Route: 065
     Dates: start: 20071003
  3. RIBAVIRIN [Suspect]
     Dosage: WEEK 15 OF THERAPY.
     Route: 065

REACTIONS (3)
  - ALOPECIA [None]
  - PAIN [None]
  - PLEURAL EFFUSION [None]
